FAERS Safety Report 5912380-6 (Version None)
Quarter: 2008Q4

REPORT INFORMATION
  Report Type: 
  Country: None (occurrence: None)
  Receive Date: 20081003
  Receipt Date: 20080922
  Transmission Date: 20090506
  Serious: Yes (Hospitalization)
  Sender: FDA-Public Use
  Company Number: 2008US000808

PATIENT
  Age: 3 Year
  Sex: Female

DRUGS (4)
  1. TACROLIMUS [Suspect]
     Indication: DERMATITIS ATOPIC
     Dosage: 0.1%, BID, TOPICAL
     Route: 061
  2. SINGULAIR [Concomitant]
  3. XOPENEX [Concomitant]
  4. PULMICORT-100 [Concomitant]

REACTIONS (9)
  - ARTERIAL INJURY [None]
  - FALL [None]
  - FOREIGN BODY TRAUMA [None]
  - JOINT INJURY [None]
  - LACERATION [None]
  - MEDIAN NERVE INJURY [None]
  - SCAR [None]
  - TENDON RUPTURE [None]
  - ULNAR NERVE INJURY [None]
